FAERS Safety Report 4557987-6 (Version None)
Quarter: 2005Q1

REPORT INFORMATION
  Report Type: 
  Country: None (occurrence: None)
  Receive Date: 20050121
  Receipt Date: 20040420
  Transmission Date: 20050727
  Serious: Yes (Other)
  Sender: FDA-Public Use
  Company Number: US-BRISTOL-MYERS SQUIBB COMPANY-12566253

PATIENT
  Age: 30 Year
  Sex: Female

DRUGS (3)
  1. SERZONE [Suspect]
     Indication: DEPRESSION
     Route: 048
     Dates: start: 20020123
  2. PROZAC [Concomitant]
  3. KLONOPIN [Concomitant]

REACTIONS (1)
  - HEPATITIS [None]
